FAERS Safety Report 10102185 (Version 1)
Quarter: 2014Q2

REPORT INFORMATION
  Report Type: Spontaneous
  Country: US (occurrence: US)
  Receive Date: 20140424
  Receipt Date: 20140424
  Transmission Date: 20141212
  Serious: No
  Sender: FDA-Public Use
  Company Number: US-PFIZER INC-2014110613

PATIENT
  Sex: Female

DRUGS (10)
  1. FLAGYL [Suspect]
     Dosage: UNK
  2. MINOCIN [Suspect]
     Dosage: UNK
  3. ASPIRIN [Suspect]
     Dosage: UNK
  4. AVELOX [Suspect]
     Dosage: UNK
  5. BIAXIN [Suspect]
     Dosage: UNK
  6. DALIRESP [Suspect]
     Dosage: UNK
  7. ENTEX LA [Suspect]
     Dosage: UNK
  8. IMITREX [Suspect]
     Dosage: UNK
  9. LOVASTATIN [Suspect]
     Dosage: UNK
  10. NOVOCAIN [Suspect]
     Dosage: UNK

REACTIONS (1)
  - Drug hypersensitivity [Unknown]
